FAERS Safety Report 18332611 (Version 1)
Quarter: 2020Q4

REPORT INFORMATION
  Report Type: Report from Study
  Country: CA (occurrence: CA)
  Receive Date: 20201001
  Receipt Date: 20201001
  Transmission Date: 20210113
  Serious: Yes (Hospitalization)
  Sender: FDA-Public Use
  Company Number: CA-ORION CORPORATION ORION PHARMA-20_00011071

PATIENT
  Age: 33 Year
  Sex: Male

DRUGS (26)
  1. APO-PREDNISONE [Concomitant]
     Active Substance: PREDNISONE
     Route: 065
  2. SALOFALK [MESALAZINE] [Concomitant]
     Active Substance: MESALAMINE
     Route: 065
  3. VENTOLINE [SALBUTAMOL SULFATE] [Concomitant]
     Active Substance: ALBUTEROL SULFATE
     Route: 050
  4. LOPERAMIDE [Concomitant]
     Active Substance: LOPERAMIDE
     Route: 048
  5. METHOTREXATE (TRADE NAME UNKNOWN) [Suspect]
     Active Substance: METHOTREXATE
     Indication: PRODUCT USED FOR UNKNOWN INDICATION
     Route: 048
  6. INFLIXIMAB [Concomitant]
     Active Substance: INFLIXIMAB
     Route: 042
  7. INFLIXIMAB [Concomitant]
     Active Substance: INFLIXIMAB
     Route: 065
  8. APO-AZATHIOPRINE [Concomitant]
     Active Substance: AZATHIOPRINE
     Route: 065
  9. BETNESOL [BETAMETHASONE SODIUM PHOSPHATE] [Concomitant]
     Active Substance: BETAMETHASONE SODIUM PHOSPHATE
     Route: 065
  10. FOLIC ACID. [Concomitant]
     Active Substance: FOLIC ACID
     Route: 048
  11. MEZAVANT [Concomitant]
     Active Substance: MESALAMINE
     Route: 048
  12. MEZAVANT [Concomitant]
     Active Substance: MESALAMINE
     Route: 065
  13. SALOFALK [MESALAZINE] [Concomitant]
     Active Substance: MESALAMINE
     Route: 065
  14. CALCIUM CARBONATE. [Concomitant]
     Active Substance: CALCIUM CARBONATE
     Route: 065
  15. CORTIMENT [BUDESONIDE] [Concomitant]
     Active Substance: BUDESONIDE
     Route: 065
  16. PSYLLIUM HUSKS [Concomitant]
     Active Substance: PSYLLIUM HUSK
     Route: 065
  17. HYDROCORTISONE. [Concomitant]
     Active Substance: HYDROCORTISONE
     Route: 065
  18. APO-PREDNISONE [Concomitant]
     Active Substance: PREDNISONE
     Route: 065
  19. VITAMIN D NOS [Concomitant]
     Active Substance: VITAMIN D NOS
     Route: 048
  20. ENTYVIO [Suspect]
     Active Substance: VEDOLIZUMAB
     Indication: COLITIS ULCERATIVE
     Route: 042
  21. APO-AZATHIOPRINE [Concomitant]
     Active Substance: AZATHIOPRINE
     Route: 065
  22. APO-PREDNISONE [Concomitant]
     Active Substance: PREDNISONE
     Route: 048
  23. PSYLLIUM HUSKS [Concomitant]
     Active Substance: PSYLLIUM HUSK
     Route: 048
  24. ENTYVIO [Suspect]
     Active Substance: VEDOLIZUMAB
     Route: 042
  25. ACETAMINOPHEN;CODEINE PHOSPHATE [Concomitant]
     Active Substance: ACETAMINOPHEN\CODEINE PHOSPHATE
     Route: 065
  26. CORTIFOAM [Concomitant]
     Active Substance: HYDROCORTISONE ACETATE
     Route: 065

REACTIONS (5)
  - Off label use [Unknown]
  - Alanine aminotransferase increased [Unknown]
  - Dyspnoea [Unknown]
  - Headache [Unknown]
  - Colitis ulcerative [Unknown]
